FAERS Safety Report 13300119 (Version 1)
Quarter: 2017Q1

REPORT INFORMATION
  Report Type: Report from Study
  Country: JP (occurrence: JP)
  Receive Date: 20170306
  Receipt Date: 20170306
  Transmission Date: 20170428
  Serious: Yes (Hospitalization)
  Sender: FDA-Public Use
  Company Number: JP-AMGEN-JPNCT2016172361

PATIENT
  Age: 47 Year
  Sex: Female
  Weight: 63.7 kg

DRUGS (5)
  1. MAGNESIUM CARBONATE [Concomitant]
     Active Substance: MAGNESIUM CARBONATE
     Dosage: 81 MG, UNK
     Route: 048
     Dates: start: 20110727
  2. ALUMINIUM GLYCINATE [Concomitant]
     Dosage: 81 MG, UNK
     Route: 048
     Dates: start: 20110727
  3. DENOSUMAB [Suspect]
     Active Substance: DENOSUMAB
     Indication: BREAST CANCER
     Dosage: 120 MG, UNK
     Route: 058
     Dates: start: 20110907, end: 20160524
  4. KAMIKIHITO [Concomitant]
     Dosage: 7.5 G, UNK
     Route: 048
     Dates: start: 20160916, end: 20160918
  5. ASPIRIN. [Concomitant]
     Active Substance: ASPIRIN
     Dosage: 81 MG, UNK
     Route: 048
     Dates: start: 20110727

REACTIONS (1)
  - Hypercalcaemia [Recovered/Resolved]

NARRATIVE: CASE EVENT DATE: 20161203
